FAERS Safety Report 7110873-X (Version None)
Quarter: 2010Q4

REPORT INFORMATION
  Report Type: 
  Country: None (occurrence: None)
  Receive Date: 20101118
  Receipt Date: 20101108
  Transmission Date: 20110411
  Serious: Yes (Other)
  Sender: FDA-Public Use
  Company Number: PHHY2008CA01221

PATIENT
  Sex: Male

DRUGS (2)
  1. SANDOSTATIN LAR [Suspect]
     Indication: CARCINOID TUMOUR
     Dosage: 20 MG EVERY 4 WEEKS
     Route: 030
     Dates: start: 20041101, end: 20050330
  2. SANDOSTATIN LAR [Suspect]
     Dosage: 20 MG EVERY 4 WEEKS
     Route: 030
     Dates: end: 20100410

REACTIONS (10)
  - BLOOD PRESSURE INCREASED [None]
  - DISTURBANCE IN SOCIAL BEHAVIOUR [None]
  - EMOTIONAL DISTRESS [None]
  - EYE DISCHARGE [None]
  - EYE DISORDER [None]
  - HEART RATE INCREASED [None]
  - LACRIMATION INCREASED [None]
  - NASOPHARYNGITIS [None]
  - PRODUCTIVE COUGH [None]
  - RENAL STONE REMOVAL [None]
